FAERS Safety Report 4763751-5 (Version None)
Quarter: 2005Q3

REPORT INFORMATION
  Report Type: 
  Country: None (occurrence: None)
  Receive Date: 20050908
  Receipt Date: 20050628
  Transmission Date: 20060218
  Serious: Yes (Other)
  Sender: FDA-Public Use
  Company Number: DE-SANOFI-SYNTHELABO-A01200504486

PATIENT
  Sex: Male
  Weight: 58 kg

DRUGS (3)
  1. ISCOVER [Suspect]
     Indication: CORONARY ANGIOPLASTY
     Route: 048
     Dates: start: 19990218, end: 20050613
  2. ISCOVER [Suspect]
     Indication: STENT PLACEMENT
     Route: 048
     Dates: start: 19990218, end: 20050613
  3. ISCOVER [Suspect]
     Indication: CORONARY ARTERY DISEASE
     Route: 048
     Dates: start: 19990218, end: 20050613

REACTIONS (3)
  - MARROW HYPERPLASIA [None]
  - PANCYTOPENIA [None]
  - THROMBOCYTOPENIA [None]
